FAERS Safety Report 7456950-5 (Version None)
Quarter: 2011Q2

REPORT INFORMATION
  Report Type: 
  Country: None (occurrence: None)
  Receive Date: 20110504
  Receipt Date: 20110321
  Transmission Date: 20111010
  Serious: Yes (Other)
  Sender: FDA-Public Use
  Company Number: US-BAYER-201038639NA

PATIENT
  Age: 33 Year
  Sex: Female
  Weight: 70.748 kg

DRUGS (8)
  1. VITAMIN B-12 [Concomitant]
  2. YAZ [Suspect]
     Indication: PREMENSTRUAL SYNDROME
  3. VITAMIN D [Concomitant]
     Indication: HYPOVITAMINOSIS
  4. LEXAPRO [Concomitant]
     Indication: DEPRESSION
  5. YAZ [Suspect]
     Indication: CONTRACEPTION
     Dosage: UNK
     Dates: start: 20010101, end: 20090101
  6. YASMIN [Suspect]
     Indication: PREMENSTRUAL SYNDROME
  7. ALLEGRA [Concomitant]
  8. YASMIN [Suspect]
     Indication: CONTRACEPTION
     Dosage: UNK
     Dates: start: 20010101, end: 20090101

REACTIONS (3)
  - BILIARY DYSKINESIA [None]
  - INJURY [None]
  - GALLBLADDER DISORDER [None]
